FAERS Safety Report 15233138 (Version 1)
Quarter: 2018Q3

REPORT INFORMATION
  Report Type: Report from Study
  Country: IT (occurrence: IT)
  Receive Date: 20180802
  Receipt Date: 20180802
  Transmission Date: 20181010
  Serious: Yes (Other)
  Sender: FDA-Public Use
  Company Number: IT-MYLANLABS-2018M1056356

PATIENT
  Age: 53 Year
  Sex: Female

DRUGS (1)
  1. KETOPROFEN. [Suspect]
     Active Substance: KETOPROFEN
     Indication: BILIARY COLIC
     Dosage: 1 DF, TOTAL
     Route: 041
     Dates: start: 20180406, end: 20180406

REACTIONS (3)
  - Erythema [Recovered/Resolved]
  - Sensation of foreign body [Recovered/Resolved]
  - Drug hypersensitivity [Recovered/Resolved]

NARRATIVE: CASE EVENT DATE: 20180406
